FAERS Safety Report 19845036 (Version 1)
Quarter: 2021Q3

REPORT INFORMATION
  Report Type: Spontaneous
  Country: US (occurrence: US)
  Receive Date: 20210915
  Receipt Date: 20210915
  Transmission Date: 20211014
  Serious: No
  Sender: FDA-Public Use
  Company Number: None

PATIENT
  Age: 68 Year
  Sex: Female

DRUGS (1)
  1. CAPECITABINE TAB 500MG [Suspect]
     Active Substance: CAPECITABINE
     Indication: BREAST CANCER
     Route: 048
     Dates: start: 20210701, end: 20210815

REACTIONS (5)
  - Gait disturbance [None]
  - Nerve injury [None]
  - Rash [None]
  - Constipation [None]
  - Fatigue [None]

NARRATIVE: CASE EVENT DATE: 20210813
